FAERS Safety Report 14120200 (Version 1)
Quarter: 2017Q4

REPORT INFORMATION
  Report Type: Spontaneous
  Country: RU (occurrence: RU)
  Receive Date: 20171024
  Receipt Date: 20171024
  Transmission Date: 20180321
  Serious: Yes (Hospitalization, Other)
  Sender: FDA-Public Use
  Company Number: RU-ASTRAZENECA-2017SF07806

PATIENT
  Age: 57 Year
  Sex: Male
  Weight: 80 kg

DRUGS (8)
  1. BRILINTA [Suspect]
     Active Substance: TICAGRELOR
     Indication: MYOCARDIAL INFARCTION
     Route: 048
  2. PANTOPRAZOLE [Concomitant]
     Active Substance: PANTOPRAZOLE
  3. PERINDOPRIL [Concomitant]
     Active Substance: PERINDOPRIL
  4. EPLERENONE. [Concomitant]
     Active Substance: EPLERENONE
  5. ATORVASTATIN [Concomitant]
     Active Substance: ATORVASTATIN
  6. PREDUCTAL [Concomitant]
     Active Substance: TRIMETAZIDINE DIHYDROCHLORIDE
  7. ACECARDOL [Concomitant]
     Active Substance: ASPIRIN
  8. BRILINTA [Suspect]
     Active Substance: TICAGRELOR
     Indication: STENT PLACEMENT
     Route: 048

REACTIONS (2)
  - Myocardial infarction [Recovered/Resolved]
  - Vascular stent thrombosis [Recovered/Resolved]
